FAERS Safety Report 14844748 (Version 1)
Quarter: 2018Q2

REPORT INFORMATION
  Report Type: Spontaneous
  Country: US (occurrence: AU)
  Receive Date: 20180504
  Receipt Date: 20180504
  Transmission Date: 20180711
  Serious: Yes (Other)
  Sender: FDA-Public Use
  Company Number: US-009507513-1805AUS001327

PATIENT
  Age: 75 Year
  Sex: Male

DRUGS (3)
  1. ZOLADEX [Suspect]
     Active Substance: GOSERELIN ACETATE
     Indication: PRODUCT USE IN UNAPPROVED INDICATION
  2. ANANDRON [Suspect]
     Active Substance: NILUTAMIDE
     Indication: PRODUCT USE IN UNAPPROVED INDICATION
     Dosage: 2 DF, QD
  3. NASONEX [Suspect]
     Active Substance: MOMETASONE FUROATE
     Indication: PRODUCT USED FOR UNKNOWN INDICATION
     Dosage: UNK

REACTIONS (6)
  - Rhinorrhoea [Unknown]
  - Cough [Unknown]
  - Dyspnoea [Unknown]
  - Deafness unilateral [Unknown]
  - Drug interaction [Unknown]
  - Dizziness [Unknown]
